FAERS Safety Report 25064935 (Version 1)
Quarter: 2025Q1

REPORT INFORMATION
  Report Type: Spontaneous
  Country: SA (occurrence: None)
  Receive Date: 20250311
  Receipt Date: 20250311
  Transmission Date: 20250409
  Serious: Yes (Hospitalization, Other)
  Sender: ACS DOBFAR
  Company Number: SA-ACS-20250143

PATIENT
  Age: 68 Year
  Sex: Female

DRUGS (6)
  1. CEFTRIAXONE [Suspect]
     Active Substance: CEFTRIAXONE
     Indication: Respiratory tract infection
     Route: 040
  2. FUROSEMIDE [Concomitant]
     Active Substance: FUROSEMIDE
     Indication: Cardiac failure
     Route: 040
  3. APIXABAN [Concomitant]
     Active Substance: APIXABAN
     Indication: Atrial fibrillation
     Dosage: 5 MG TWICE DAILY
  4. BISOPROLOL [Concomitant]
     Active Substance: BISOPROLOL
  5. NIFEDIPINE [Concomitant]
     Active Substance: NIFEDIPINE
  6. VALSARTAN [Concomitant]
     Active Substance: VALSARTAN

REACTIONS (1)
  - Generalised bullous fixed drug eruption [Recovered/Resolved]
